FAERS Safety Report 23041669 (Version 4)
Quarter: 2025Q1

REPORT INFORMATION
  Report Type: Report from Study
  Country: US (occurrence: US)
  Receive Date: 20231007
  Receipt Date: 20250324
  Transmission Date: 20250409
  Serious: Yes (Other)
  Sender: NOVARTIS
  Company Number: US-002147023-NVSC2023US213726

PATIENT
  Sex: Female

DRUGS (1)
  1. KESIMPTA [Suspect]
     Active Substance: OFATUMUMAB
     Indication: Product used for unknown indication
     Dosage: UNK, QMO
     Route: 065

REACTIONS (9)
  - Multiple sclerosis [Recovering/Resolving]
  - Feeling abnormal [Recovering/Resolving]
  - Weight increased [Unknown]
  - Illness [Recovering/Resolving]
  - Gastroenteritis viral [Recovering/Resolving]
  - Vomiting [Recovering/Resolving]
  - Diarrhoea [Recovering/Resolving]
  - Nausea [Recovering/Resolving]
  - Inappropriate schedule of product administration [Unknown]
